FAERS Safety Report 17032868 (Version 2)
Quarter: 2019Q4

REPORT INFORMATION
  Report Type: Spontaneous
  Country: US (occurrence: US)
  Receive Date: 20191114
  Receipt Date: 20191118
  Transmission Date: 20200122
  Serious: No
  Sender: FDA-Public Use
  Company Number: US-PFIZER INC-2019489125

PATIENT
  Age: 71 Year
  Sex: Male

DRUGS (1)
  1. TIKOSYN [Suspect]
     Active Substance: DOFETILIDE
     Dosage: 250 MG, 2X/DAY (TIKOSYN FOR 6 WEEKS, 250MG IN THE MORNING AND 250 MG AT NIGHT)

REACTIONS (2)
  - Product prescribing error [Unknown]
  - Fatigue [Unknown]
